FAERS Safety Report 17676968 (Version 1)
Quarter: 2020Q2

REPORT INFORMATION
  Report Type: Spontaneous
  Country: CA (occurrence: CA)
  Receive Date: 20200416
  Receipt Date: 20200416
  Transmission Date: 20200714
  Serious: Yes (Other)
  Sender: FDA-Public Use
  Company Number: CA-TEVA-2020-CA-1222148

PATIENT
  Age: 13 Year
  Sex: Male
  Weight: 49 kg

DRUGS (31)
  1. CODEINE [Concomitant]
     Active Substance: CODEINE
  2. AMOXICILLIN;CLAVULANATE POTASSIUM [Concomitant]
     Active Substance: AMOXICILLIN\CLAVULANATE POTASSIUM
  3. CEPHALEXIN [CEFALEXIN] [Concomitant]
     Active Substance: CEPHALEXIN
  4. NABILONE [Concomitant]
     Active Substance: NABILONE
  5. GRAMICIDIN/POLYMYXIN B [Concomitant]
  6. VINCRISTINE SULFATE. [Suspect]
     Active Substance: VINCRISTINE SULFATE
     Indication: MEDULLOBLASTOMA
     Route: 042
  7. CYPROHEPTADINE HYDROCHLORIDE. [Concomitant]
     Active Substance: CYPROHEPTADINE HYDROCHLORIDE
  8. MESNA. [Concomitant]
     Active Substance: MESNA
  9. VANCOMYCIN [Concomitant]
     Active Substance: VANCOMYCIN
  10. CEFAZOLIN [Concomitant]
     Active Substance: CEFAZOLIN
  11. PIPERACILLIN SODIUM/TAZOBACTAM SODIUM [Concomitant]
     Active Substance: PIPERACILLIN SODIUM\TAZOBACTAM SODIUM
  12. ACETAMINOPHEN. [Concomitant]
     Active Substance: ACETAMINOPHEN
  13. CISPLATIN. [Concomitant]
     Active Substance: CISPLATIN
  14. LORAZEPAM. [Concomitant]
     Active Substance: LORAZEPAM
  15. NEUPOGEN [Concomitant]
     Active Substance: FILGRASTIM
  16. ALLOPURINOL. [Concomitant]
     Active Substance: ALLOPURINOL
  17. DEXAMETHASONE. [Concomitant]
     Active Substance: DEXAMETHASONE
  18. CCNU [Concomitant]
     Active Substance: LOMUSTINE
  19. DIMENHYDRINATE. [Concomitant]
     Active Substance: DIMENHYDRINATE
  20. DIPHENHYDRAMINE. [Concomitant]
     Active Substance: DIPHENHYDRAMINE
  21. DOCUSATE [Concomitant]
     Active Substance: DOCUSATE
  22. MORPHINE [Concomitant]
     Active Substance: MORPHINE
  23. RANITIDINE. [Concomitant]
     Active Substance: RANITIDINE
  24. TOBRAMYCIN. [Concomitant]
     Active Substance: TOBRAMYCIN
  25. CYCLOPHOSPHAMIDE. [Concomitant]
     Active Substance: CYCLOPHOSPHAMIDE
  26. EMEND [Concomitant]
     Active Substance: APREPITANT
  27. LEVOTHYROXINE. [Concomitant]
     Active Substance: LEVOTHYROXINE
  28. METOCLOPRAMIDE. [Concomitant]
     Active Substance: METOCLOPRAMIDE
  29. ONDANSETRON [Concomitant]
     Active Substance: ONDANSETRON
  30. TRANEXAMIC ACID. [Concomitant]
     Active Substance: TRANEXAMIC ACID
  31. SULFAMETHOXAZOLE/TRIMETHOPRIM [Concomitant]
     Active Substance: SULFAMETHOXAZOLE\TRIMETHOPRIM

REACTIONS (3)
  - Neuropathy peripheral [Recovered/Resolved]
  - Off label use [Recovered/Resolved]
  - Product use in unapproved indication [Recovered/Resolved]
